FAERS Safety Report 8190051-6 (Version None)
Quarter: 2012Q1

REPORT INFORMATION
  Report Type: 
  Country: None (occurrence: None)
  Receive Date: 20120307
  Receipt Date: 20120307
  Transmission Date: 20120608
  Serious: Yes (Life-Threatening)
  Sender: FDA-Public Use
  Company Number: None

PATIENT
  Age: 70 Year
  Sex: Female
  Weight: 84 kg

DRUGS (20)
  1. OMEPRAZOLE [Concomitant]
     Route: 048
  2. PREDNISONE TAB [Concomitant]
     Route: 048
  3. SINGULAIR [Concomitant]
     Route: 048
  4. FOLIC ACID [Concomitant]
     Route: 048
  5. METHOTREXATE [Concomitant]
     Route: 048
  6. PRADAXA [Suspect]
     Indication: THROMBOSIS PROPHYLAXIS
     Dosage: 150 MG
     Route: 048
  7. PRADAXA [Suspect]
     Indication: ATRIAL FIBRILLATION
     Dosage: 150 MG
     Route: 048
  8. PERCOCET-5 [Concomitant]
     Route: 048
  9. TYLENOL-500 [Concomitant]
     Route: 048
  10. ARICEPT [Concomitant]
     Route: 048
  11. DILTIAZEM HCL [Concomitant]
     Route: 048
  12. DOCUSATE [Concomitant]
     Route: 048
  13. DETROL LA [Concomitant]
     Route: 048
  14. LORAZEPAM [Concomitant]
     Route: 048
  15. CYMBALTA [Concomitant]
     Route: 048
  16. ASPIRIN [Concomitant]
     Route: 048
  17. METFORMIN [Concomitant]
     Route: 048
  18. MIRALAX [Concomitant]
     Route: 048
  19. PHENERGAN [Concomitant]
     Route: 048
  20. SIMVASTATIN [Concomitant]
     Route: 048

REACTIONS (2)
  - INTRAVENTRICULAR HAEMORRHAGE [None]
  - BASAL GANGLIA HAEMORRHAGE [None]
